FAERS Safety Report 5193000-8 (Version None)
Quarter: 2006Q4

REPORT INFORMATION
  Report Type: 
  Country: None (occurrence: None)
  Receive Date: 20061228
  Receipt Date: 20060209
  Transmission Date: 20070319
  Serious: No
  Sender: FDA-Public Use
  Company Number: US-GLAXOSMITHKLINE-A0593066A

PATIENT
  Age: 72 Year
  Sex: Male

DRUGS (10)
  1. AVODART [Suspect]
     Indication: BENIGN PROSTATIC HYPERPLASIA
     Dosage: .5MG PER DAY
     Route: 048
     Dates: start: 20060126
  2. ACTONEL [Concomitant]
  3. AMANTADINE HCL [Concomitant]
  4. FLOMAX [Concomitant]
  5. THYROID TAB [Concomitant]
  6. LOPRESSOR [Concomitant]
  7. NITRO TABS [Concomitant]
  8. BACLOFEN [Concomitant]
  9. PRAVACHOL [Concomitant]
  10. DOPA [Concomitant]

REACTIONS (1)
  - OEDEMA PERIPHERAL [None]
